FAERS Safety Report 17136985 (Version 2)
Quarter: 2020Q1

REPORT INFORMATION
  Report Type: Spontaneous
  Country: US (occurrence: US)
  Receive Date: 20191210
  Receipt Date: 20200103
  Transmission Date: 20200409
  Serious: No
  Sender: FDA-Public Use
  Company Number: US-PFIZER INC-2016465652

PATIENT
  Age: 92 Year
  Sex: Female

DRUGS (3)
  1. LYRICA [Suspect]
     Active Substance: PREGABALIN
     Indication: PERIPHERAL VASCULAR DISORDER
  2. LYRICA [Suspect]
     Active Substance: PREGABALIN
     Indication: PEPTIC ULCER
  3. LYRICA [Suspect]
     Active Substance: PREGABALIN
     Indication: NEUROPATHY PERIPHERAL
     Dosage: 100 MG, 2X/DAY
     Route: 048

REACTIONS (1)
  - Confusional state [Unknown]
